FAERS Safety Report 13123466 (Version 10)
Quarter: 2017Q3

REPORT INFORMATION
  Report Type: Spontaneous
  Country: US (occurrence: US)
  Receive Date: 20170117
  Receipt Date: 20170804
  Transmission Date: 20171127
  Serious: Yes (Hospitalization)
  Sender: FDA-Public Use
  Company Number: US-ACTELION-A-NJ2017-148197

PATIENT
  Age: 19 Year
  Sex: Female
  Weight: 56.24 kg

DRUGS (6)
  1. COUMADIN [Concomitant]
     Active Substance: WARFARIN SODIUM
  2. ADCIRCA [Concomitant]
     Active Substance: TADALAFIL
  3. LETAIRIS [Concomitant]
     Active Substance: AMBRISENTAN
  4. ADEMPAS [Concomitant]
     Active Substance: RIOCIGUAT
  5. VELETRI [Suspect]
     Active Substance: EPOPROSTENOL
     Indication: PULMONARY ARTERIAL HYPERTENSION
     Dosage: 75 NG/KG, PER MIN
     Route: 042
     Dates: start: 20170106
  6. VELETRI [Suspect]
     Active Substance: EPOPROSTENOL
     Dosage: 70 NG/KG, PER MIN
     Route: 042

REACTIONS (19)
  - Vision blurred [Unknown]
  - Device alarm issue [Unknown]
  - Weight decreased [Unknown]
  - Suicidal ideation [Unknown]
  - Pulmonary hypertension [Unknown]
  - Dizziness [Unknown]
  - Vomiting [Unknown]
  - Dyspnoea [Unknown]
  - Abdominal pain [Recovering/Resolving]
  - Device related thrombosis [Recovered/Resolved]
  - Haemoglobin decreased [Recovering/Resolving]
  - Right ventricular failure [Unknown]
  - Rash [Unknown]
  - Hypoxia [Unknown]
  - Haemorrhagic ovarian cyst [Recovering/Resolving]
  - Mental disorder [Unknown]
  - Pneumonia [Unknown]
  - Ascites [Unknown]
  - Nausea [Unknown]

NARRATIVE: CASE EVENT DATE: 20170620
